FAERS Safety Report 9117915 (Version 2)
Quarter: 2013Q1

REPORT INFORMATION
  Report Type: Spontaneous
  Country: NZ (occurrence: NZ)
  Receive Date: 20130225
  Receipt Date: 20130227
  Transmission Date: 20140127
  Serious: Yes (Other)
  Sender: FDA-Public Use
  Company Number: PHHY2013NZ016163

PATIENT
  Age: 82 Year
  Sex: Male

DRUGS (2)
  1. CEFEPIME [Suspect]
     Indication: PNEUMONIA
     Dosage: 2 G, Q12H
     Route: 042
  2. ROXITHROMYCIN [Concomitant]
     Indication: PNEUMONIA
     Dosage: 150 MG, BID
     Route: 048

REACTIONS (7)
  - Septic shock [Unknown]
  - Organ failure [Unknown]
  - Hypoxia [Unknown]
  - General physical health deterioration [Unknown]
  - Toxicity to various agents [Unknown]
  - Convulsion [Recovered/Resolved]
  - Renal failure acute [Unknown]
